FAERS Safety Report 9543805 (Version 3)
Quarter: 2013Q4

REPORT INFORMATION
  Report Type: Report from Study
  Country: US (occurrence: US)
  Receive Date: 20130923
  Receipt Date: 20131021
  Transmission Date: 20140711
  Serious: Yes (Hospitalization)
  Sender: FDA-Public Use
  Company Number: US-ASTRAZENECA-2013SE70824

PATIENT
  Age: 28020 Day
  Sex: Female
  Weight: 97.5 kg

DRUGS (3)
  1. NEXIUM [Suspect]
     Indication: PROPHYLAXIS
     Route: 048
     Dates: start: 20121027, end: 20130901
  2. CELECOXIB,IBUPROFEN,NAPROXEN,PLACEBO [Suspect]
     Indication: OSTEOARTHRITIS
     Dosage: THREE TIMES A DAY
     Route: 048
     Dates: start: 20121027, end: 20130901
  3. CELECOXIB,IBUPROFEN,NAPROXEN,PLACEBO [Suspect]
     Indication: RHEUMATOID ARTHRITIS
     Dosage: THREE TIMES A DAY
     Route: 048
     Dates: start: 20121027, end: 20130901

REACTIONS (1)
  - Acute myocardial infarction [Recovered/Resolved]
